FAERS Safety Report 23658258 (Version 1)
Quarter: 2024Q1

REPORT INFORMATION
  Report Type: Spontaneous
  Country: US (occurrence: US)
  Receive Date: 20240321
  Receipt Date: 20240321
  Transmission Date: 20240410
  Serious: No
  Sender: FDA-Public Use
  Company Number: US-PFIZER INC-PV202400030288

PATIENT
  Age: 41 Year
  Sex: Female
  Weight: 104.32 kg

DRUGS (1)
  1. NURTEC ODT [Suspect]
     Active Substance: RIMEGEPANT SULFATE
     Indication: Migraine
     Dosage: 1, 75 MG TABLET AS NEEDED.
     Dates: start: 20240229, end: 20240229

REACTIONS (4)
  - Migraine [Recovered/Resolved]
  - Reaction to excipient [Recovered/Resolved]
  - Reaction to sweetener [Recovered/Resolved]
  - Expired product administered [Unknown]

NARRATIVE: CASE EVENT DATE: 20240229
